FAERS Safety Report 5662830-8 (Version None)
Quarter: 2008Q1

REPORT INFORMATION
  Report Type: 
  Country: None (occurrence: None)
  Receive Date: 20080311
  Receipt Date: 20080311
  Transmission Date: 20080703
  Serious: Yes (Hospitalization, Other)
  Sender: FDA-Public Use
  Company Number: None

PATIENT
  Sex: Female
  Weight: 58.0604 kg

DRUGS (1)
  1. CELESTONE SOLUSPAN [Suspect]
     Indication: IMMATURE RESPIRATORY SYSTEM
     Dosage: 12MG Q24H IV
     Route: 042
     Dates: start: 20080307, end: 20080307

REACTIONS (2)
  - INCORRECT ROUTE OF DRUG ADMINISTRATION [None]
  - MEDICATION ERROR [None]
